FAERS Safety Report 7372591 (Version 3)
Quarter: 2013Q1

REPORT INFORMATION
  Report Type: Spontaneous
  Country: US (occurrence: US)
  Receive Date: 20100430
  Receipt Date: 20130115
  Transmission Date: 20140127
  Serious: No
  Sender: FDA-Public Use
  Company Number: US-ASTRAZENECA-2010SE08828

PATIENT
  Age: 53 Year
  Sex: Female

DRUGS (3)
  1. NEXIUM [Suspect]
     Route: 048
     Dates: start: 2005
  2. LISINOPRIL [Suspect]
     Route: 048
  3. DEXILANT [Concomitant]

REACTIONS (4)
  - Dyspepsia [Unknown]
  - Vision blurred [Unknown]
  - Malaise [Unknown]
  - Drug dose omission [Unknown]
